FAERS Safety Report 4862297-3 (Version None)
Quarter: 2005Q4

REPORT INFORMATION
  Report Type: 
  Country: None (occurrence: None)
  Receive Date: 20051201
  Receipt Date: 20050718
  Transmission Date: 20060501
  Serious: No
  Sender: FDA-Public Use
  Company Number: 2005PV000431

PATIENT
  Age: 64 Year
  Sex: Female
  Weight: 46.7205 kg

DRUGS (17)
  1. BYETTA [Suspect]
     Indication: DIABETES MELLITUS NON-INSULIN-DEPENDENT
     Dosage: 5 MCG;BID;SC
     Route: 058
     Dates: start: 20050630, end: 20050701
  2. AMARYL [Concomitant]
  3. METFORMIN HCL [Concomitant]
  4. LEVOTHYROXINE SODIUM [Concomitant]
  5. LISINOPRIL [Concomitant]
  6. LIPITOR [Concomitant]
  7. EVISTA [Concomitant]
  8. ACTOS [Concomitant]
  9. NIASPAN [Concomitant]
  10. DIGITEK [Concomitant]
  11. FLECAINIDE ACETATE [Concomitant]
  12. MULTIVITAMIN [Concomitant]
  13. CALCIUM GLUCONATE [Concomitant]
  14. ASCORBIC ACID [Concomitant]
  15. FISH OIL [Concomitant]
  16. ASPIRIN [Concomitant]
  17. FLECAINIDE ACETATE [Concomitant]

REACTIONS (4)
  - COLD SWEAT [None]
  - NAUSEA [None]
  - TREMOR [None]
  - VOMITING [None]
